FAERS Safety Report 5352649-X (Version None)
Quarter: 2007Q2

REPORT INFORMATION
  Report Type: 
  Country: None (occurrence: None)
  Receive Date: 20070518
  Receipt Date: 20070226
  Transmission Date: 20071010
  Serious: No
  Sender: FDA-Public Use
  Company Number: TPA2007A00494

PATIENT
  Age: 62 Year
  Sex: Female
  Weight: 80.7403 kg

DRUGS (3)
  1. ROZEREM [Suspect]
     Indication: INSOMNIA
     Dosage: 8 MG, AS REQUIRED, PER ORAL
     Route: 048
     Dates: start: 20061201
  2. TRICOR [Concomitant]
  3. ZETIA [Concomitant]

REACTIONS (3)
  - DRUG INEFFECTIVE [None]
  - INITIAL INSOMNIA [None]
  - INSOMNIA [None]
